FAERS Safety Report 5678916-8 (Version None)
Quarter: 2008Q1

REPORT INFORMATION
  Report Type: 
  Country: None (occurrence: None)
  Receive Date: 20080325
  Receipt Date: 20080319
  Transmission Date: 20080703
  Serious: Yes (Death, Other)
  Sender: FDA-Public Use
  Company Number: PHHY2008JP03534

PATIENT

DRUGS (1)
  1. SANDIMMUNE [Suspect]
     Indication: PROPHYLAXIS AGAINST GRAFT VERSUS HOST DISEASE
     Dosage: 3 MG/KG/DAY
     Route: 041
     Dates: start: 20080220, end: 20080317

REACTIONS (3)
  - DRUG LEVEL INCREASED [None]
  - JAUNDICE [None]
  - PNEUMONIA [None]
